FAERS Safety Report 5852005-1 (Version None)
Quarter: 2008Q3

REPORT INFORMATION
  Report Type: 
  Country: None (occurrence: None)
  Receive Date: 20080820
  Receipt Date: 20080808
  Transmission Date: 20090109
  Serious: Yes (Hospitalization)
  Sender: FDA-Public Use
  Company Number: FR-PFIZER INC-2008066931

PATIENT
  Age: 50 Year
  Sex: Female

DRUGS (5)
  1. CHANTIX [Suspect]
     Route: 048
     Dates: start: 20080615, end: 20080719
  2. TIOTROPIUM [Concomitant]
  3. BUDESONIDE [Concomitant]
  4. IBUPROFENE [Concomitant]
  5. ACETAMINOPHEN [Concomitant]

REACTIONS (1)
  - HEPATITIS [None]
